FAERS Safety Report 19534356 (Version 4)
Quarter: 2021Q3

REPORT INFORMATION
  Report Type: Report from Study
  Country: CA (occurrence: CA)
  Receive Date: 20210713
  Receipt Date: 20210924
  Transmission Date: 20211014
  Serious: Yes (Hospitalization, Other)
  Sender: FDA-Public Use
  Company Number: CA-SA-2021SA224546

PATIENT
  Age: 66 Year
  Sex: Female

DRUGS (2)
  1. PROLIA [Concomitant]
     Active Substance: DENOSUMAB
  2. SARILUMAB [Suspect]
     Active Substance: SARILUMAB
     Indication: RHEUMATOID ARTHRITIS
     Dosage: 200 MG, QOW
     Route: 058
     Dates: start: 20200907, end: 20210707

REACTIONS (6)
  - Hepatic failure [Not Recovered/Not Resolved]
  - Encephalitis [Recovered/Resolved]
  - Platelet count decreased [Not Recovered/Not Resolved]
  - Hospitalisation [Unknown]
  - Spleen disorder [Not Recovered/Not Resolved]
  - Confusional state [Not Recovered/Not Resolved]

NARRATIVE: CASE EVENT DATE: 20210701
